FAERS Safety Report 9209532 (Version 1)
Quarter: 2013Q1

REPORT INFORMATION
  Report Type: Spontaneous
  Country: US (occurrence: None)
  Receive Date: 20120820
  Receipt Date: 20120820
  Transmission Date: 20140127
  Serious: No
  Sender: FDA-Public Use
  Company Number: 1000030380

PATIENT
  Age: 54 Year
  Sex: Male

DRUGS (3)
  1. VIIBRYD [Suspect]
     Indication: DEPRESSION
     Dosage: 10 MG 1 IN 1 D
     Route: 048
     Dates: start: 20120502
  2. SYNTHROID (LEVOTHYROXINE SODIUM) (LEVOTHYROXINE SODIUM) [Concomitant]
  3. FOLIC ACID (FOLIC ACID) (FOLIC ACID( [Concomitant]

REACTIONS (2)
  - Abdominal pain upper [None]
  - Myalgia [None]
